FAERS Safety Report 25182252 (Version 1)
Quarter: 2025Q2

REPORT INFORMATION
  Report Type: Spontaneous
  Country: US (occurrence: US)
  Receive Date: 20250410
  Receipt Date: 20250410
  Transmission Date: 20250716
  Serious: No
  Sender: KINIKSA PHARMACEUTICALS
  Company Number: US-Kiniksa Pharmaceuticals Ltd.-2024KPU000596

PATIENT
  Age: 69 Year
  Sex: Female

DRUGS (9)
  1. ARCALYST [Suspect]
     Active Substance: RILONACEPT
     Indication: Pericarditis
     Route: 058
     Dates: start: 20231104
  2. ARCALYST [Suspect]
     Active Substance: RILONACEPT
     Indication: Pericarditis
     Dosage: 220MG/2ML
     Route: 058
     Dates: start: 20231111
  3. ARCALYST [Suspect]
     Active Substance: RILONACEPT
     Indication: Pericarditis
  4. IBUPROFEN [Concomitant]
     Active Substance: IBUPROFEN
  5. NASACORT [Concomitant]
     Active Substance: TRIAMCINOLONE ACETONIDE
  6. ASTEPRO [Concomitant]
     Active Substance: AZELASTINE HYDROCHLORIDE
  7. METOPROLOL [Concomitant]
     Active Substance: METOPROLOL
  8. ARMOUR THYROID [Concomitant]
     Active Substance: THYROID, PORCINE
  9. LASIX [Concomitant]
     Active Substance: FUROSEMIDE
     Indication: Cardiac failure congestive

REACTIONS (9)
  - Nasopharyngitis [Unknown]
  - Product dose omission issue [Unknown]
  - Pericarditis [Unknown]
  - Throat irritation [Recovered/Resolved]
  - Malaise [Unknown]
  - Chest pain [Not Recovered/Not Resolved]
  - Cough [Not Recovered/Not Resolved]
  - Injection site erythema [Recovered/Resolved]
  - Injection site swelling [Recovered/Resolved]

NARRATIVE: CASE EVENT DATE: 20240303
